FAERS Safety Report 7833389-1 (Version None)
Quarter: 2011Q4

REPORT INFORMATION
  Report Type: 
  Country: None (occurrence: None)
  Receive Date: 20111024
  Receipt Date: 20111010
  Transmission Date: 20120403
  Serious: Yes (Congenital Anomaly)
  Sender: FDA-Public Use
  Company Number: DE-MYLANLABS-2011S1021003

PATIENT

DRUGS (6)
  1. ENOXAPARIN SODIUM [Concomitant]
     Indication: DEEP VEIN THROMBOSIS
     Dosage: 140 [MG/D (60+80) ]- EXPOSURE DURING 10.5-13.1 GESTATIONAL WEEK
     Route: 064
     Dates: start: 20110114, end: 20110131
  2. RAMIPRIL [Suspect]
     Indication: GLOMERULONEPHRITIS MEMBRANOUS
     Dosage: 5 [MG/D ]
     Route: 064
     Dates: start: 20101031, end: 20110126
  3. FALITHROM [Suspect]
     Indication: PULMONARY EMBOLISM
     Dosage: 6 [MG/D (2X3) ]
     Route: 064
     Dates: start: 20091031, end: 20110113
  4. CYCLOSPORINE [Suspect]
     Dosage: 300 [MG/D (2X150) ]
     Route: 064
     Dates: start: 20091031, end: 20110131
  5. TORSEMIDE [Suspect]
     Indication: GLOMERULONEPHRITIS MEMBRANOUS
     Dosage: 10 [MG/D ]
     Route: 064
     Dates: start: 20101031, end: 20110126
  6. PREDNISOLONE [Concomitant]
     Indication: SYSTEMIC LUPUS ERYTHEMATOSUS
     Dosage: 7.5 [MG/D ]- GESTATIONAL 0-13.1 WEEKS
     Route: 064
     Dates: start: 20091031, end: 20110131

REACTIONS (2)
  - FALLOT'S TETRALOGY [None]
  - MATERNAL EXPOSURE DURING PREGNANCY [None]
